FAERS Safety Report 6425036-0 (Version None)
Quarter: 2009Q4

REPORT INFORMATION
  Report Type: 
  Country: None (occurrence: None)
  Receive Date: 20091030
  Receipt Date: 20091030
  Transmission Date: 20100525
  Serious: Yes (Other)
  Sender: FDA-Public Use
  Company Number: None

PATIENT
  Age: 49 Year
  Sex: Female

DRUGS (1)
  1. MAGNEVIST [Suspect]
     Indication: NUCLEAR MAGNETIC RESONANCE IMAGING
     Dosage: 2CC IV
     Route: 042
     Dates: start: 20091012

REACTIONS (3)
  - CONTRAST MEDIA REACTION [None]
  - DYSPNOEA [None]
  - RASH ERYTHEMATOUS [None]
